FAERS Safety Report 7648277-3 (Version None)
Quarter: 2011Q3

REPORT INFORMATION
  Report Type: 
  Country: None (occurrence: None)
  Receive Date: 20110801
  Receipt Date: 20110628
  Transmission Date: 20111222
  Serious: Yes (Other)
  Sender: FDA-Public Use
  Company Number: US-BAYER-201038938NA

PATIENT
  Age: 30 Year
  Sex: Female
  Weight: 81.633 kg

DRUGS (11)
  1. HYDROCODONE BITARTRATE AND ACETAMINOPHEN [Concomitant]
     Dosage: 500 MG, PRN
  2. YASMIN [Suspect]
     Indication: PREMENSTRUAL SYNDROME
     Dosage: 1 DF, QD
     Dates: start: 20040101, end: 20090101
  3. YAZ [Suspect]
     Dosage: UNK UNK, QD
     Dates: start: 20040101, end: 20090101
  4. DROSPIRENONE AND ETHINYL ESTRADIOL [Suspect]
     Dosage: UNK UNK, QD
     Dates: start: 20040101, end: 20090101
  5. SINGULAIR [Concomitant]
     Dosage: 10 MG, QD
  6. METRONIDAZOLE [Concomitant]
     Dosage: 500 MG, BID
  7. YASMIN [Suspect]
     Indication: CONTRACEPTION
     Dosage: UNK UNK, UNK
     Route: 048
     Dates: start: 20051101
  8. CYCLOBENZAPRINE [Concomitant]
     Dosage: 10 MG, QD
  9. IBUPROFEN [Concomitant]
     Dosage: 800 MG, TID
  10. YASMIN [Suspect]
  11. ZYRTEC [Concomitant]
     Dosage: UNK UNK, QD

REACTIONS (13)
  - NAUSEA [None]
  - OBESITY [None]
  - CHOLECYSTITIS CHRONIC [None]
  - DYSPEPSIA [None]
  - ENDOMETRIOSIS [None]
  - HEPATIC STEATOSIS [None]
  - GALLBLADDER NON-FUNCTIONING [None]
  - ABDOMINAL PAIN [None]
  - CONSTIPATION [None]
  - DIARRHOEA [None]
  - CHOLELITHIASIS [None]
  - NEPHROLITHIASIS [None]
  - VOMITING [None]
